FAERS Safety Report 6844499-X (Version None)
Quarter: 2010Q3

REPORT INFORMATION
  Report Type: 
  Country: None (occurrence: None)
  Receive Date: 20100715
  Receipt Date: 20100708
  Transmission Date: 20110219
  Serious: Yes (Other)
  Sender: FDA-Public Use
  Company Number: US-B.I. PHARMACEUTICALS,INC./RIDGEFIELD-2010-BP-07776BP

PATIENT
  Age: 40 Year
  Sex: Female

DRUGS (3)
  1. AGGRENOX [Suspect]
     Indication: CEREBROVASCULAR ACCIDENT
     Dosage: 50MG/400MG
     Route: 048
     Dates: start: 20071201, end: 20100501
  2. ATENOLOL [Concomitant]
  3. SERTRALINE HCL [Concomitant]

REACTIONS (3)
  - MENOPAUSE [None]
  - SKIN ULCER [None]
  - TRANSIENT ISCHAEMIC ATTACK [None]
